FAERS Safety Report 23079795 (Version 1)
Quarter: 2023Q4

REPORT INFORMATION
  Report Type: Spontaneous
  Country: US (occurrence: US)
  Receive Date: 20231018
  Receipt Date: 20231018
  Transmission Date: 20240110
  Serious: No
  Sender: FDA-Public Use
  Company Number: US-PFIZER INC-202300329595

PATIENT
  Age: 41 Year
  Sex: Female

DRUGS (4)
  1. PAXLOVID [Suspect]
     Active Substance: NIRMATRELVIR\RITONAVIR
     Indication: COVID-19 treatment
     Dosage: UNK
     Dates: start: 20231002, end: 20231006
  2. SERTRALINE [Concomitant]
     Active Substance: SERTRALINE HYDROCHLORIDE
  3. LORATADINE [Concomitant]
     Active Substance: LORATADINE
  4. DELSYM [Concomitant]
     Active Substance: DEXTROMETHORPHAN
     Indication: Cough
     Dosage: UNK
     Dates: start: 20231011, end: 20231013

REACTIONS (2)
  - Disease recurrence [Recovering/Resolving]
  - COVID-19 [Recovering/Resolving]

NARRATIVE: CASE EVENT DATE: 20231013
